FAERS Safety Report 6311201-X (Version None)
Quarter: 2009Q3

REPORT INFORMATION
  Report Type: 
  Country: None (occurrence: None)
  Receive Date: 20090817
  Receipt Date: 20090811
  Transmission Date: 20100115
  Serious: Yes (Death, Other)
  Sender: FDA-Public Use
  Company Number: CN-SANOFI-SYNTHELABO-A01200908425

PATIENT
  Sex: Female
  Weight: 50 kg

DRUGS (3)
  1. LOW MOLECULAR WEIGHT HEPARIN [Concomitant]
     Indication: CORONARY ARTERY DISEASE
     Dosage: 100 UNIT/KG
     Route: 058
     Dates: start: 20090730, end: 20090809
  2. ASPIRIN [Concomitant]
     Indication: CORONARY ARTERY DISEASE
     Route: 048
     Dates: start: 20090728, end: 20090809
  3. PLAVIX [Suspect]
     Indication: PERCUTANEOUS CORONARY INTERVENTION
     Route: 048
     Dates: start: 20090805, end: 20090809

REACTIONS (1)
  - ARTERIAL RUPTURE [None]
